FAERS Safety Report 5145848-3 (Version None)
Quarter: 2006Q4

REPORT INFORMATION
  Report Type: 
  Country: None (occurrence: None)
  Receive Date: 20061108
  Receipt Date: 20061031
  Transmission Date: 20070319
  Serious: Yes (Death)
  Sender: FDA-Public Use
  Company Number: PHBS2006NL16961

PATIENT
  Age: 71 Year
  Sex: Male

DRUGS (4)
  1. CLOZAPINE [Suspect]
  2. HALOPERIDOL [Suspect]
  3. PAROXETINE HCL [Suspect]
  4. BIPERIDEN HYDROCHLORIDE TAB [Suspect]

REACTIONS (4)
  - BEDRIDDEN [None]
  - CONDITION AGGRAVATED [None]
  - DEMENTIA [None]
  - MUSCLE CONTRACTIONS INVOLUNTARY [None]
